FAERS Safety Report 7411489-8 (Version None)
Quarter: 2011Q2

REPORT INFORMATION
  Report Type: 
  Country: None (occurrence: None)
  Receive Date: 20110413
  Receipt Date: 20110401
  Transmission Date: 20111010
  Serious: Yes (Other)
  Sender: FDA-Public Use
  Company Number: PHHY2011US23434

PATIENT
  Sex: Female
  Weight: 105.69 kg

DRUGS (1)
  1. EXJADE [Suspect]
     Indication: IRON OVERLOAD
     Dosage: 2125 MG, QD
     Route: 048
     Dates: start: 20110215, end: 20110217

REACTIONS (3)
  - NAUSEA [None]
  - DIARRHOEA [None]
  - DRUG INTOLERANCE [None]
